FAERS Safety Report 11931000 (Version 1)
Quarter: 2016Q1

REPORT INFORMATION
  Report Type: Spontaneous
  Country: US (occurrence: US)
  Receive Date: 20160120
  Receipt Date: 20160120
  Transmission Date: 20160526
  Serious: No
  Sender: FDA-Public Use
  Company Number: US-INCYTE CORPORATION-2015IN004316

PATIENT
  Age: 68 Year
  Sex: Female

DRUGS (12)
  1. JAKAFI [Suspect]
     Active Substance: RUXOLITINIB
     Indication: MYELOFIBROSIS
     Dosage: 10 MG, BID
     Route: 048
  2. HUMALOG [Concomitant]
     Active Substance: INSULIN LISPRO
  3. LEVEMIR [Concomitant]
     Active Substance: INSULIN DETEMIR
  4. METOPROLOL. [Concomitant]
     Active Substance: METOPROLOL
  5. FLECAINIDE [Concomitant]
     Active Substance: FLECAINIDE
  6. ABILIFY [Concomitant]
     Active Substance: ARIPIPRAZOLE
  7. IRBESARTAN. [Concomitant]
     Active Substance: IRBESARTAN
  8. PANTOPRAZOLE [Concomitant]
     Active Substance: PANTOPRAZOLE SODIUM
  9. BUPROPION. [Concomitant]
     Active Substance: BUPROPION
  10. ALLOPURINOL. [Concomitant]
     Active Substance: ALLOPURINOL
  11. LEVOTHYROXINE. [Concomitant]
     Active Substance: LEVOTHYROXINE
  12. LASIX [Concomitant]
     Active Substance: FUROSEMIDE

REACTIONS (1)
  - Drug dose omission [Unknown]

NARRATIVE: CASE EVENT DATE: 201508
